FAERS Safety Report 24917522 (Version 2)
Quarter: 2025Q2

REPORT INFORMATION
  Report Type: Spontaneous
  Country: US (occurrence: US)
  Receive Date: 20250203
  Receipt Date: 20250604
  Transmission Date: 20250717
  Serious: No
  Sender: BAYER HEALTHCARE PHARMACEUTICALS INC.
  Company Number: US-BAYER-2025A013690

PATIENT
  Age: 60 Year
  Sex: Female

DRUGS (2)
  1. BETASERON [Suspect]
     Active Substance: INTERFERON BETA-1B
  2. DEVICE [Suspect]
     Active Substance: DEVICE

REACTIONS (2)
  - Product dose omission issue [None]
  - Device operational issue [None]

NARRATIVE: CASE EVENT DATE: 20250128
